FAERS Safety Report 10265162 (Version 1)
Quarter: 2014Q2

REPORT INFORMATION
  Report Type: Spontaneous
  Country: CH (occurrence: CH)
  Receive Date: 20140627
  Receipt Date: 20140627
  Transmission Date: 20141212
  Serious: Yes (Life-Threatening, Other)
  Sender: FDA-Public Use
  Company Number: CH-TEVA-489287ISR

PATIENT
  Age: 64 Year
  Sex: Female
  Weight: 60 kg

DRUGS (10)
  1. IRFEN [Suspect]
     Dosage: IRFEN WAS RESERVE MEDICATION, IT WAS NOT KNOWN IF THE PATIENT REALLY TOOK THE DRUG
     Route: 048
     Dates: start: 201405, end: 20140523
  2. XARELTO 10 MG [Interacting]
     Indication: THROMBOSIS PROPHYLAXIS
     Dosage: 10 MILLIGRAM DAILY;
     Route: 048
     Dates: start: 20140514, end: 20140523
  3. PRIADEL [Concomitant]
     Indication: BIPOLAR DISORDER
     Dosage: 600 MILLIGRAM DAILY; LONG TERM, 400 MG IN THE EVENING, 200 MG IN THE MORNING
     Route: 048
  4. TRANXILIUM [Concomitant]
     Dosage: 10 MILLIGRAM DAILY; LONG TERM
     Route: 048
  5. PANTOPRAZOL [Concomitant]
     Dosage: 20 MILLIGRAM DAILY; LONG TERM
     Route: 065
  6. ATORVASTATIN [Concomitant]
     Dosage: 40 MILLIGRAM DAILY; LONG TERM
     Route: 065
  7. CIPRALEX [Concomitant]
     Dosage: 20 MILLIGRAM DAILY; LONG TERM
     Route: 065
  8. CO-BECETAMOL [Concomitant]
     Dosage: 3 DOSAGE FORMS DAILY; 1 DF = 500 MG PARACETAMOL AND 30 MG CODEIN
     Route: 065
     Dates: start: 201405, end: 20140523
  9. OXYCONTIN [Concomitant]
     Dosage: 20 MILLIGRAM DAILY;
     Route: 065
     Dates: start: 20140506, end: 20140514
  10. CLEXAN [Concomitant]
     Route: 065
     Dates: start: 20140508, end: 20140514

REACTIONS (7)
  - Cardio-respiratory arrest [Recovered/Resolved]
  - Pulseless electrical activity [Recovered/Resolved]
  - Cardiac tamponade [Recovered/Resolved]
  - Pericardial haemorrhage [Recovered/Resolved]
  - Ventricular arrhythmia [Unknown]
  - Drug interaction [Recovered/Resolved]
  - Cognitive disorder [Unknown]
